FAERS Safety Report 15253503 (Version 1)
Quarter: 2018Q3

REPORT INFORMATION
  Report Type: Spontaneous
  Country: US (occurrence: US)
  Receive Date: 20180808
  Receipt Date: 20180808
  Transmission Date: 20181010
  Serious: No
  Sender: FDA-Public Use
  Company Number: US-BRISTOL-MYERS SQUIBB COMPANY-BMS-2018-071390

PATIENT
  Age: 48 Year
  Sex: Female

DRUGS (2)
  1. ELIQUIS [Suspect]
     Active Substance: APIXABAN
     Indication: PROTEIN C DEFICIENCY
     Dosage: UNK, BID
     Route: 048
     Dates: start: 201804
  2. ELIQUIS [Suspect]
     Active Substance: APIXABAN
     Indication: PROTEIN S DEFICIENCY
     Route: 065

REACTIONS (2)
  - Product use in unapproved indication [Unknown]
  - Urine odour abnormal [Unknown]
